FAERS Safety Report 6152774-X (Version None)
Quarter: 2009Q2

REPORT INFORMATION
  Report Type: 
  Country: None (occurrence: None)
  Receive Date: 20090409
  Receipt Date: 20090405
  Transmission Date: 20091009
  Serious: Yes (Other)
  Sender: FDA-Public Use
  Company Number: 2009SP007445

PATIENT
  Sex: Female

DRUGS (3)
  1. MIRALAX [Suspect]
     Indication: BOWEL PREPARATION
     Dosage: 238 GM; PO
     Route: 048
     Dates: start: 20090331
  2. MIRALAX [Suspect]
     Indication: COLONOSCOPY
     Dosage: 238 GM; PO
     Route: 048
     Dates: start: 20090331
  3. MIRALAX [Suspect]
     Indication: OFF LABEL USE
     Dosage: 238 GM; PO
     Route: 048
     Dates: start: 20090331

REACTIONS (1)
  - NEUROPATHY PERIPHERAL [None]
